FAERS Safety Report 10402920 (Version 1)
Quarter: 2014Q3

REPORT INFORMATION
  Report Type: Spontaneous
  Country: TW (occurrence: TW)
  Receive Date: 20140822
  Receipt Date: 20140822
  Transmission Date: 20150326
  Serious: Yes (Hospitalization)
  Sender: FDA-Public Use
  Company Number: TW-ACTELION-A-CH2014-103931

PATIENT
  Age: 46 Year
  Sex: Female

DRUGS (3)
  1. TRACLEER [Suspect]
     Active Substance: BOSENTAN\BOSENTAN MONOHYDRATE
     Dosage: 62.5 MG, BID
     Route: 048
     Dates: start: 201404
  2. REMODULIN [Concomitant]
     Active Substance: TREPROSTINIL
     Dosage: UNK
     Dates: start: 201407
  3. TRACLEER [Suspect]
     Active Substance: BOSENTAN\BOSENTAN MONOHYDRATE
     Indication: PULMONARY ARTERIAL HYPERTENSION
     Dosage: 125 MG, BID
     Route: 048

REACTIONS (2)
  - Pericardial drainage [Unknown]
  - Pericardial effusion [Not Recovered/Not Resolved]

NARRATIVE: CASE EVENT DATE: 20140815
